FAERS Safety Report 8625040 (Version 3)
Quarter: 2013Q4

REPORT INFORMATION
  Report Type: Spontaneous
  Country: US (occurrence: US)
  Receive Date: 20120620
  Receipt Date: 20131227
  Transmission Date: 20140711
  Serious: Yes (Hospitalization, Other)
  Sender: FDA-Public Use
  Company Number: US-ASTRAZENECA-2010SE25190

PATIENT
  Age: 59 Year
  Sex: Female
  Weight: 88.5 kg

DRUGS (12)
  1. NEXIUM [Suspect]
     Indication: GASTROOESOPHAGEAL REFLUX DISEASE
     Route: 048
     Dates: start: 2003, end: 20131101
  2. METOPROLOL SUCCINATE [Suspect]
     Indication: HYPERTENSION
     Route: 048
     Dates: end: 2010
  3. METOPROLOL SUCCINATE [Suspect]
     Indication: HYPERTENSION
     Route: 048
     Dates: start: 2010
  4. AMATESIA [Concomitant]
     Indication: BOWEL MOVEMENT IRREGULARITY
  5. POTASSIUM CL [Concomitant]
     Indication: ELECTROLYTE IMBALANCE
     Route: 048
     Dates: start: 20131022
  6. AMITIZA [Concomitant]
     Indication: GASTROINTESTINAL DISORDER
     Route: 048
  7. ASPIRIN [Concomitant]
     Indication: ANGIOPATHY
     Route: 048
     Dates: start: 2010
  8. MAGNESIUM [Concomitant]
     Indication: ILL-DEFINED DISORDER
     Route: 048
     Dates: start: 201305
  9. VIT D3 [Concomitant]
     Route: 048
     Dates: start: 2012
  10. AMOXICILLIN [Concomitant]
     Indication: PROPHYLAXIS
     Route: 048
  11. CYCLOBENZAPRINE [Concomitant]
     Indication: ARTHRITIS
     Dosage: 10MG AS NEEDED Q8H
     Route: 048
  12. XANAX [Concomitant]
     Indication: TREMOR
     Dosage: 1MG AS NEEDED TID
     Route: 048
     Dates: start: 2010

REACTIONS (40)
  - Poor peripheral circulation [Unknown]
  - Regurgitation [Unknown]
  - Electrolyte imbalance [Unknown]
  - Aortic valve calcification [Not Recovered/Not Resolved]
  - Abnormal weight gain [Unknown]
  - Fall [Unknown]
  - Varicose vein [Unknown]
  - Peripheral vascular disorder [Unknown]
  - Adverse event [Unknown]
  - Clavicle fracture [Unknown]
  - Joint dislocation [Unknown]
  - Syncope [Unknown]
  - Mobility decreased [Unknown]
  - Intentional self-injury [Unknown]
  - Feeling abnormal [Unknown]
  - Transient ischaemic attack [Unknown]
  - Dyspnoea [Unknown]
  - Gastrooesophageal reflux disease [Unknown]
  - Dysgraphia [Unknown]
  - Cardiac disorder [Unknown]
  - Feeling abnormal [Unknown]
  - Drug withdrawal syndrome [Not Recovered/Not Resolved]
  - Aphagia [Not Recovered/Not Resolved]
  - Sleep disorder due to general medical condition, insomnia type [Not Recovered/Not Resolved]
  - Hepatitis C [Not Recovered/Not Resolved]
  - Pain [Not Recovered/Not Resolved]
  - Tremor [Not Recovered/Not Resolved]
  - Hypertension [Unknown]
  - Abnormal behaviour [Unknown]
  - Frustration [Unknown]
  - Memory impairment [Unknown]
  - Gastrointestinal motility disorder [Unknown]
  - Colitis [Unknown]
  - Extrasystoles [Unknown]
  - Sensory loss [Unknown]
  - Abnormal faeces [Unknown]
  - Grip strength decreased [Unknown]
  - Aggression [Unknown]
  - Vomiting [Unknown]
  - Drug dose omission [Unknown]
